FAERS Safety Report 10953230 (Version 1)
Quarter: 2015Q1

REPORT INFORMATION
  Report Type: Spontaneous
  Country: JP (occurrence: JP)
  Receive Date: 20150325
  Receipt Date: 20150325
  Transmission Date: 20150721
  Serious: Yes (Hospitalization)
  Sender: FDA-Public Use
  Company Number: JP-SA-2015SA035905

PATIENT
  Age: 64 Year
  Sex: Female

DRUGS (4)
  1. VOGLIBOSE [Suspect]
     Active Substance: VOGLIBOSE
     Indication: DIABETES MELLITUS
     Route: 048
  2. GLIMEPIRIDE. [Suspect]
     Active Substance: GLIMEPIRIDE
     Indication: DIABETES MELLITUS
     Route: 048
  3. METFORMIN [Suspect]
     Active Substance: METFORMIN HYDROCHLORIDE
     Indication: DIABETES MELLITUS
     Route: 048
  4. EXENATIDE [Concomitant]
     Active Substance: EXENATIDE
     Indication: DIABETES MELLITUS

REACTIONS (8)
  - Blood bicarbonate decreased [Recovering/Resolving]
  - Blood pH decreased [Recovering/Resolving]
  - Hypoglycaemia [Recovering/Resolving]
  - Lactic acidosis [Recovering/Resolving]
  - Metabolic acidosis [Recovering/Resolving]
  - Blood lactic acid increased [Recovering/Resolving]
  - Drug level increased [Unknown]
  - Dehydration [Recovering/Resolving]
